FAERS Safety Report 9122782 (Version 1)
Quarter: 2013Q1

REPORT INFORMATION
  Report Type: Spontaneous
  Country: US (occurrence: US)
  Receive Date: 20130115
  Receipt Date: 20130115
  Transmission Date: 20140127
  Serious: No
  Sender: FDA-Public Use
  Company Number: US-VERTEX PHARMACEUTICALS INC.-2013-000530

PATIENT
  Sex: Female
  Weight: 131 kg

DRUGS (11)
  1. INCIVEK [Suspect]
     Indication: HEPATITIS C
     Dosage: UNK
     Route: 048
     Dates: start: 201212
  2. PEGINTERFERON ALFA-2A [Suspect]
     Indication: HEPATITIS C
  3. RIBAVIRIN [Suspect]
  4. DIOVAN [Concomitant]
  5. CELEXA                             /00582602/ [Concomitant]
  6. LANTUS [Concomitant]
  7. NAPROXEN                           /00256202/ [Concomitant]
  8. VITAMIN B12                        /00056201/ [Concomitant]
  9. LEVOTHYROXINE [Concomitant]
     Dosage: UNK, PRN
  10. GLIPIZIDE [Concomitant]
     Dosage: UNK, PRN
  11. ASPIRIN ACTAVIS [Concomitant]
     Dosage: UNK, PRN

REACTIONS (1)
  - Blood glucose decreased [Not Recovered/Not Resolved]
